FAERS Safety Report 13509247 (Version 3)
Quarter: 2017Q3

REPORT INFORMATION
  Report Type: Spontaneous
  Country: US (occurrence: US)
  Receive Date: 20170503
  Receipt Date: 20170731
  Transmission Date: 20171127
  Serious: Yes (Hospitalization, Other)
  Sender: FDA-Public Use
  Company Number: US-PFIZER INC-2017186228

PATIENT
  Sex: Female
  Weight: 66.68 kg

DRUGS (3)
  1. REVATIO [Suspect]
     Active Substance: SILDENAFIL CITRATE
     Indication: PULMONARY ARTERIAL HYPERTENSION
     Dosage: 20 MG, 3X/DAY
     Dates: start: 2012
  2. TRACLEER [Concomitant]
     Active Substance: BOSENTAN
     Indication: CARDIAC DISORDER
     Dosage: 125 MG, 2X/DAY
     Route: 048
  3. REVATIO [Suspect]
     Active Substance: SILDENAFIL CITRATE
     Indication: CARDIAC DISORDER
     Dosage: 60 MG, 3X/DAY (20MG THREE TABLETS THREE TIMES A DAY)
     Route: 048

REACTIONS (4)
  - Product use issue [Unknown]
  - Pleural effusion [Unknown]
  - Malaise [Recovered/Resolved]
  - Dyspnoea [Unknown]
